FAERS Safety Report 24466064 (Version 1)
Quarter: 2024Q4

REPORT INFORMATION
  Report Type: Report from Study
  Country: US (occurrence: US)
  Receive Date: 20241018
  Receipt Date: 20241018
  Transmission Date: 20250114
  Serious: No
  Sender: ROCHE
  Company Number: US-ROCHE-3525861

PATIENT
  Age: 62 Year
  Sex: Female
  Weight: 117.93 kg

DRUGS (19)
  1. XOLAIR [Suspect]
     Active Substance: OMALIZUMAB
     Indication: Urticaria
     Route: 058
  2. XOLAIR [Suspect]
     Active Substance: OMALIZUMAB
     Indication: Idiopathic urticaria
  3. MONTELUKAST [Concomitant]
     Active Substance: MONTELUKAST
  4. SYMBICORT [Concomitant]
     Active Substance: BUDESONIDE\FORMOTEROL FUMARATE DIHYDRATE
  5. VENTOLIN HFA [Concomitant]
     Active Substance: ALBUTEROL SULFATE
  6. ASPIRIN [Concomitant]
     Active Substance: ASPIRIN
  7. ATORVASTATIN [Concomitant]
     Active Substance: ATORVASTATIN
  8. BENADRYL GEL [Concomitant]
     Active Substance: DIPHENHYDRAMINE HYDROCHLORIDE
  9. CELEXA [Concomitant]
     Active Substance: CITALOPRAM HYDROBROMIDE
  10. CHLORTHALIDONE [Concomitant]
     Active Substance: CHLORTHALIDONE
  11. ACIDOPHILUS [Concomitant]
     Active Substance: LACTOBACILLUS ACIDOPHILUS
  12. GLIPIZIDE [Concomitant]
     Active Substance: GLIPIZIDE
  13. JARDIANCE [Concomitant]
     Active Substance: EMPAGLIFLOZIN
  14. LEVOTHYROXINE [Concomitant]
     Active Substance: LEVOTHYROXINE
  15. OMEPRAZOLE [Concomitant]
     Active Substance: OMEPRAZOLE
  16. SALINEX NASAL SPRAY [Concomitant]
  17. ZIAC [Concomitant]
     Active Substance: BISOPROLOL FUMARATE\HYDROCHLOROTHIAZIDE
  18. TYLENOL EXTRA STRENGTH [Concomitant]
     Active Substance: ACETAMINOPHEN
  19. AUVI-Q [Concomitant]
     Active Substance: EPINEPHRINE

REACTIONS (18)
  - Bronchitis [Unknown]
  - Hypertension [Unknown]
  - Rhinitis [Unknown]
  - Asthma [Unknown]
  - Gastrooesophageal reflux disease [Unknown]
  - Eye pruritus [Unknown]
  - Rhinorrhoea [Unknown]
  - Sneezing [Unknown]
  - Ear pain [Unknown]
  - Headache [Unknown]
  - Oropharyngeal pain [Unknown]
  - Throat irritation [Unknown]
  - Upper-airway cough syndrome [Unknown]
  - Nasal congestion [Unknown]
  - Dry skin [Unknown]
  - Pruritus [Unknown]
  - Anxiety [Unknown]
  - Depression [Unknown]
